FAERS Safety Report 6616702 (Version 7)
Quarter: 2014Q2

REPORT INFORMATION
  Report Type: Spontaneous
  Country: US (occurrence: US)
  Receive Date: 20080417
  Receipt Date: 20140502
  Transmission Date: 20141212
  Serious: Yes (Hospitalization, Disabling, Other)
  Sender: FDA-Public Use
  Company Number: US-JNJFOC-20080402599

PATIENT
  Age: 63 Year
  Sex: Female
  Weight: 47.17 kg

DRUGS (2)
  1. REMICADE [Suspect]
     Indication: RHEUMATOID ARTHRITIS
     Dosage: INFUSIONS FOR 5-6 YEARS
     Route: 042
     Dates: end: 200606
  2. TYLENOL ARTHRITIS [Concomitant]
     Indication: RHEUMATOID ARTHRITIS

REACTIONS (1)
  - Pulmonary tuberculosis [Recovered/Resolved]
